FAERS Safety Report 5263674-1 (Version None)
Quarter: 2007Q1

REPORT INFORMATION
  Report Type: 
  Country: None (occurrence: None)
  Receive Date: 20070313
  Receipt Date: 20070226
  Transmission Date: 20070707
  Serious: Yes (Other)
  Sender: FDA-Public Use
  Company Number: US-AMGEN-US212787

PATIENT
  Age: 14 Year
  Sex: Female
  Weight: 99.9 kg

DRUGS (1)
  1. ENBREL [Suspect]
     Indication: PSORIASIS

REACTIONS (3)
  - DEPRESSION [None]
  - OBESITY [None]
  - SUICIDAL IDEATION [None]
